FAERS Safety Report 10308928 (Version 2)
Quarter: 2015Q1

REPORT INFORMATION
  Report Type: Spontaneous
  Country: IT (occurrence: IT)
  Receive Date: 20140716
  Receipt Date: 20140716
  Transmission Date: 20150720
  Serious: Yes (Hospitalization)
  Sender: FDA-Public Use
  Company Number: IT-BAYER-2014-103321

PATIENT
  Age: 62 Year
  Sex: Male

DRUGS (1)
  1. ASPIRINA [Suspect]
     Active Substance: ASPIRIN
     Indication: PAIN
     Dosage: 40 DF, UNK
     Route: 048
     Dates: start: 20131016, end: 20131017

REACTIONS (3)
  - Hypoacusis [Unknown]
  - Drug abuse [Unknown]
  - Hyperhidrosis [Unknown]

NARRATIVE: CASE EVENT DATE: 20131017
